FAERS Safety Report 8215648-6 (Version None)
Quarter: 2012Q1

REPORT INFORMATION
  Report Type: 
  Country: None (occurrence: None)
  Receive Date: 20120313
  Receipt Date: 20120302
  Transmission Date: 20120608
  Serious: Yes (Hospitalization, Other)
  Sender: FDA-Public Use
  Company Number: CIP11000513

PATIENT
  Age: 71 Year
  Sex: Female

DRUGS (23)
  1. ZETIA [Concomitant]
  2. OSCAL /00108001/ (CALCIUM CARBONATE) [Concomitant]
  3. FOSAMAX [Suspect]
     Indication: OSTEOPOROSIS
     Dosage: 70 MG, 1 /WEEK, ORAL
     Route: 048
     Dates: start: 20071229, end: 20080201
  4. LIPITOR [Concomitant]
  5. SYNTHROID [Concomitant]
  6. ADVAIR HFA [Concomitant]
  7. FOSAMAX [Suspect]
     Indication: OSTEOPOROSIS
     Dosage: 35 MG, ORAL
     Route: 048
     Dates: start: 20021129, end: 20040423
  8. ZEGERID /00661201/ (OMEPRAZOLE) [Concomitant]
  9. ACTONEL [Suspect]
     Indication: OSTEOPOROSIS
     Dosage: 35 MG ONCE WEEKLY, ORAL
     Route: 048
     Dates: start: 20090212, end: 20090701
  10. ATIVAN [Concomitant]
  11. POTASSIUM CHLORIDE [Concomitant]
  12. EVISTA /01303201/ (RALOXIFENE) [Concomitant]
  13. METFORMIN HCL [Concomitant]
  14. FORTEO [Concomitant]
  15. NEXIUM [Concomitant]
  16. CENESTIN [Concomitant]
  17. ZYRTEC [Concomitant]
  18. ACTOS [Concomitant]
  19. ALENDRONATE SODIUM [Suspect]
     Indication: OSTEOPOROSIS
     Dosage: 70 MG, 1 /WEEK, ORAL
     Route: 048
     Dates: start: 20080328, end: 20090201
  20. RAMIPRIL [Concomitant]
  21. CELEBREX [Concomitant]
  22. MAXZIDE [Concomitant]
  23. CRESTOR [Concomitant]

REACTIONS (12)
  - FRACTURE DELAYED UNION [None]
  - PAIN IN EXTREMITY [None]
  - BACK PAIN [None]
  - OEDEMA PERIPHERAL [None]
  - PATHOLOGICAL FRACTURE [None]
  - FEMUR FRACTURE [None]
  - FRACTURE DISPLACEMENT [None]
  - STRESS FRACTURE [None]
  - SPINAL COLUMN STENOSIS [None]
  - INJURY [None]
  - FALL [None]
  - ARTHRALGIA [None]
